FAERS Safety Report 23055253 (Version 1)
Quarter: 2023Q4

REPORT INFORMATION
  Report Type: Spontaneous
  Country: US (occurrence: US)
  Receive Date: 20231011
  Receipt Date: 20231011
  Transmission Date: 20240109
  Serious: No
  Sender: FDA-Public Use
  Company Number: US-ABBVIE-5424335

PATIENT
  Sex: Female

DRUGS (2)
  1. OXYTROL [Suspect]
     Active Substance: OXYBUTYNIN
     Indication: Product used for unknown indication
     Dosage: TRANSDERMAL SOLUTION
     Route: 062
  2. OXYTROL [Suspect]
     Active Substance: OXYBUTYNIN
     Route: 062

REACTIONS (2)
  - Urinary tract disorder [Unknown]
  - Constipation [Unknown]
